FAERS Safety Report 7772044-3 (Version None)
Quarter: 2011Q3

REPORT INFORMATION
  Report Type: 
  Country: None (occurrence: None)
  Receive Date: 20110922
  Receipt Date: 20100816
  Transmission Date: 20111222
  Serious: No
  Sender: FDA-Public Use
  Company Number: US-ASTRAZENECA-2010SE38417

PATIENT
  Age: 77 Year
  Sex: Male

DRUGS (12)
  1. COLACE [Concomitant]
  2. SIMETHICONE [Concomitant]
  3. LAMICTAL [Concomitant]
  4. ACIPHEX [Concomitant]
  5. SEROQUEL [Suspect]
     Indication: BIPOLAR DISORDER
     Route: 048
  6. LEXAPRO [Interacting]
     Indication: ANXIETY
     Route: 048
     Dates: start: 20100805, end: 20100808
  7. ATIVAN [Interacting]
     Indication: ANXIETY
     Route: 065
  8. VITAMIN B-12 [Concomitant]
  9. RISPERDAL [Concomitant]
  10. GEMFIBROZIL [Concomitant]
     Indication: BLOOD CHOLESTEROL INCREASED
  11. DOXEPIN [Concomitant]
  12. LEXAPRO [Interacting]
     Route: 048
     Dates: start: 20100809

REACTIONS (2)
  - ANXIETY [None]
  - DRUG INTERACTION [None]
